FAERS Safety Report 6166347-6 (Version None)
Quarter: 2009Q2

REPORT INFORMATION
  Report Type: 
  Country: None (occurrence: None)
  Receive Date: 20090422
  Receipt Date: 20090422
  Transmission Date: 20091009
  Serious: Yes (Other)
  Sender: FDA-Public Use
  Company Number: None

PATIENT

DRUGS (1)
  1. ZOLOFT [Suspect]
     Indication: STRESS
     Dosage: 25 MG ONCE A DAY
     Dates: start: 19940101, end: 20080204

REACTIONS (19)
  - BACK PAIN [None]
  - CHEST DISCOMFORT [None]
  - CYST [None]
  - DIZZINESS [None]
  - DRUG EFFECT DECREASED [None]
  - DRUG WITHDRAWAL SYNDROME [None]
  - DYSPNOEA [None]
  - FEELING ABNORMAL [None]
  - HEADACHE [None]
  - HIATUS HERNIA [None]
  - INCREASED UPPER AIRWAY SECRETION [None]
  - INFECTION [None]
  - MALAISE [None]
  - MUSCLE TWITCHING [None]
  - NASAL DISCOMFORT [None]
  - OBSTRUCTIVE AIRWAYS DISORDER [None]
  - SINUS DISORDER [None]
  - SOMNOLENCE [None]
  - THROAT TIGHTNESS [None]
